FAERS Safety Report 6439487-1 (Version None)
Quarter: 2009Q4

REPORT INFORMATION
  Report Type: 
  Country: None (occurrence: None)
  Receive Date: 20091113
  Receipt Date: 20091106
  Transmission Date: 20100525
  Serious: Yes (Other)
  Sender: FDA-Public Use
  Company Number: US-JNJFOC-20091102541

PATIENT
  Sex: Female
  Weight: 66.23 kg

DRUGS (2)
  1. ORTHO EVRA [Suspect]
     Indication: CONTRACEPTION
     Route: 062
     Dates: start: 20090601
  2. ZITHROMAX [Interacting]
     Indication: BRONCHITIS
     Route: 048

REACTIONS (4)
  - APPLICATION SITE PRURITUS [None]
  - APPLICATION SITE RASH [None]
  - BRONCHITIS [None]
  - DRUG INTERACTION [None]
